FAERS Safety Report 6650605-2 (Version None)
Quarter: 2010Q1

REPORT INFORMATION
  Report Type: 
  Country: None (occurrence: None)
  Receive Date: 20100325
  Receipt Date: 20100310
  Transmission Date: 20100710
  Serious: No
  Sender: FDA-Public Use
  Company Number: US-BIOGENIDEC-2010BI007955

PATIENT
  Age: 48 Year
  Sex: Female
  Weight: 83 kg

DRUGS (15)
  1. AVONEX [Suspect]
     Indication: MULTIPLE SCLEROSIS
     Route: 030
     Dates: start: 20090719, end: 20091216
  2. CHEMOTHERAPY [Concomitant]
     Indication: MULTIPLE SCLEROSIS
     Route: 042
     Dates: start: 20070101
  3. STEROIDS (NOS) [Concomitant]
     Indication: MULTIPLE SCLEROSIS
     Route: 042
     Dates: start: 20070101
  4. NAUSEA MEDICATION (NOS) [Concomitant]
     Indication: NAUSEA
     Route: 042
     Dates: start: 20070101
  5. GABAPENTIN [Concomitant]
     Indication: HEADACHE
     Route: 048
     Dates: start: 20000101
  6. GABAPENTIN [Concomitant]
     Indication: CONVULSION
     Route: 048
     Dates: start: 20000101
  7. PHENYTOIN [Concomitant]
     Indication: CONVULSION
     Route: 048
     Dates: start: 20050101
  8. VALTREX [Concomitant]
     Indication: GENITAL HERPES
     Dates: start: 19920101
  9. DETRAL LA [Concomitant]
     Indication: URINARY INCONTINENCE
     Route: 048
     Dates: start: 20070101
  10. DESMOPRESSIN ACETATE [Concomitant]
     Indication: URINARY INCONTINENCE
     Dates: start: 20100303
  11. EFFEXOR [Concomitant]
     Indication: PERSONALITY CHANGE
     Dates: start: 20060101
  12. EFFEXOR [Concomitant]
  13. EFFEXOR [Concomitant]
  14. NEXIUM [Concomitant]
     Indication: GASTROOESOPHAGEAL REFLUX DISEASE
     Dates: start: 20000101
  15. SIMVASTATIN [Concomitant]
     Indication: BLOOD CHOLESTEROL INCREASED
     Dates: start: 20070101

REACTIONS (2)
  - INSOMNIA [None]
  - SUICIDAL IDEATION [None]
